FAERS Safety Report 6308754-4 (Version None)
Quarter: 2009Q3

REPORT INFORMATION
  Report Type: 
  Country: None (occurrence: None)
  Receive Date: 20090813
  Receipt Date: 20080227
  Transmission Date: 20100115
  Serious: No
  Sender: FDA-Public Use
  Company Number: US-ALLERGAN-0802348US

PATIENT
  Sex: Female

DRUGS (3)
  1. ALPHAGAN P [Suspect]
     Indication: GLAUCOMA
     Dosage: UNK, UNKNOWN
     Route: 047
  2. TIMOLOL MALEATE [Suspect]
     Indication: GLAUCOMA
     Dosage: UNK, UNKNOWN
     Route: 047
  3. COMBIGAN [Suspect]
     Indication: GLAUCOMA
     Dosage: UNK, UNKNOWN
     Route: 047
     Dates: start: 20080101

REACTIONS (1)
  - SOMNOLENCE [None]
